FAERS Safety Report 9610979 (Version 3)
Quarter: 2014Q1

REPORT INFORMATION
  Report Type: Spontaneous
  Country: US (occurrence: US)
  Receive Date: 20131009
  Receipt Date: 20140106
  Transmission Date: 20141002
  Serious: Yes (Hospitalization)
  Sender: FDA-Public Use
  Company Number: US-GLAXOSMITHKLINE-A0903082A

PATIENT
  Sex: Female

DRUGS (5)
  1. AVANDAMET [Suspect]
     Indication: DIABETES MELLITUS
     Route: 048
     Dates: start: 200409, end: 201004
  2. AVANDIA [Suspect]
     Indication: DIABETES MELLITUS
     Dosage: 2MG UNKNOWN
     Route: 048
     Dates: start: 2006
  3. PROZAC [Concomitant]
  4. NEXIUM [Concomitant]
  5. CLONAZEPAM [Concomitant]

REACTIONS (4)
  - Myocardial infarction [Unknown]
  - Transient ischaemic attack [Unknown]
  - Coronary artery disease [Unknown]
  - Cardiovascular disorder [Unknown]
